FAERS Safety Report 5057163-7 (Version None)
Quarter: 2006Q2

REPORT INFORMATION
  Report Type: 
  Country: None (occurrence: None)
  Receive Date: 20060622
  Receipt Date: 20060123
  Transmission Date: 20061013
  Serious: Yes (Other)
  Sender: FDA-Public Use
  Company Number: US-JNJFOC-20060104970

PATIENT
  Age: 57 Year
  Sex: Female
  Weight: 63.5036 kg

DRUGS (7)
  1. DURAGESIC-100 [Suspect]
     Indication: PAIN
     Dosage: SEE IMAGE
     Route: 062
     Dates: start: 19950101
  2. DURAGESIC-100 [Suspect]
     Indication: PAIN
     Dosage: SEE IMAGE
     Route: 062
     Dates: start: 20010101
  3. SEROQUEL [Concomitant]
  4. PREMPRO 14/14 [Concomitant]
  5. NORVASC [Concomitant]
  6. LORAZEPAM [Concomitant]
  7. AMPHETAMINE (AMFETAMINE) [Concomitant]

REACTIONS (4)
  - FEELING COLD [None]
  - THERAPEUTIC RESPONSE DECREASED [None]
  - TREMOR [None]
  - WEIGHT DECREASED [None]
